FAERS Safety Report 7793575-6 (Version None)
Quarter: 2011Q4

REPORT INFORMATION
  Report Type: 
  Country: None (occurrence: None)
  Receive Date: 20111003
  Receipt Date: 20110629
  Transmission Date: 20120403
  Serious: Yes (Hospitalization, Other)
  Sender: FDA-Public Use
  Company Number: PHHY2011DE58386

PATIENT
  Sex: Female

DRUGS (9)
  1. SIMVASTATIN [Concomitant]
     Indication: HYPERCHOLESTEROLAEMIA
     Dosage: 1 DF, QD
     Route: 048
     Dates: start: 20080325
  2. RAMIPRIL+HYDROCHLOROTHIAZIDE [Suspect]
     Indication: HYPERTENSION
     Dosage: 1 DF, QD
     Route: 048
     Dates: start: 20080325
  3. PROCORALAN [Suspect]
     Indication: CORONARY ARTERY DISEASE
     Dosage: 3 DF, QD
     Route: 048
     Dates: start: 20090128, end: 20100409
  4. RASILEZ [Suspect]
     Indication: HYPERTENSION
     Dosage: UNK
     Route: 048
     Dates: start: 20081030, end: 20100409
  5. OMEPRAZOLE [Suspect]
     Dosage: 1 DF, QD
     Route: 048
     Dates: start: 20080325
  6. CALCIUM ANTAGONIST [Concomitant]
  7. ASPIRIN [Suspect]
     Indication: MYOCARDIAL INFARCTION
     Dosage: 1 DF, QD
     Route: 048
     Dates: start: 20080325
  8. BETA BLOCKING AGENTS [Concomitant]
     Dosage: UNK
     Dates: end: 20100409
  9. ANTIHYPERTENSIVE DRUGS [Concomitant]

REACTIONS (3)
  - ACUTE MYOCARDIAL INFARCTION [None]
  - ELECTROCARDIOGRAM QT PROLONGED [None]
  - HEART RATE INCREASED [None]
